FAERS Safety Report 6458684-2 (Version None)
Quarter: 2009Q4

REPORT INFORMATION
  Report Type: 
  Country: None (occurrence: None)
  Receive Date: 20091120
  Receipt Date: 20091105
  Transmission Date: 20100525
  Serious: Yes (Hospitalization, Other)
  Sender: FDA-Public Use
  Company Number: DSU-2009-02521

PATIENT
  Age: 86 Year
  Sex: Female

DRUGS (4)
  1. OLMESARTAN MEDOXOMIL [Suspect]
     Indication: HYPERTENSION
     Dosage: PER ORAL
     Route: 048
     Dates: start: 20090101, end: 20090101
  2. NORVASC [Concomitant]
  3. ASPIRIN [Concomitant]
  4. LIPITOR [Concomitant]

REACTIONS (7)
  - ATRIOVENTRICULAR BLOCK [None]
  - DIASTOLIC DYSFUNCTION [None]
  - DYSPNOEA [None]
  - LABILE BLOOD PRESSURE [None]
  - LEFT VENTRICULAR HYPERTROPHY [None]
  - RENAL FAILURE ACUTE [None]
  - VISUAL IMPAIRMENT [None]
